FAERS Safety Report 9612629 (Version 1)
Quarter: 2013Q4

REPORT INFORMATION
  Report Type: Other
  Country: US (occurrence: US)
  Receive Date: 20131010
  Receipt Date: 20131010
  Transmission Date: 20140711
  Serious: Yes (Death)
  Sender: FDA-Public Use
  Company Number: US-SHIRE-ALL1-2013-06918

PATIENT
  Age: 72 Year
  Sex: Female
  Weight: 99.77 kg

DRUGS (1)
  1. FOSRENOL [Suspect]
     Indication: RENAL FAILURE CHRONIC
     Dosage: UNK, UNKNOWN
     Route: 048
     Dates: start: 200503

REACTIONS (1)
  - Death [Fatal]
